FAERS Safety Report 5252768-2 (Version None)
Quarter: 2007Q1

REPORT INFORMATION
  Report Type: 
  Country: None (occurrence: None)
  Receive Date: 20070301
  Receipt Date: 20061129
  Transmission Date: 20070707
  Serious: No
  Sender: FDA-Public Use
  Company Number: US-GLAXOSMITHKLINE-A0629446A

PATIENT
  Age: 21 Year
  Sex: Male

DRUGS (5)
  1. LAMICTAL [Suspect]
     Indication: BIPOLAR DISORDER
     Dosage: 200MG TWICE PER DAY
     Route: 048
     Dates: start: 20061001
  2. PAXIL [Concomitant]
  3. SEROQUEL [Concomitant]
  4. INDERAL [Concomitant]
  5. CAMPRAL [Concomitant]

REACTIONS (2)
  - READING DISORDER [None]
  - VISION BLURRED [None]
